FAERS Safety Report 15034554 (Version 1)
Quarter: 2018Q2

REPORT INFORMATION
  Report Type: Spontaneous
  Country: AU (occurrence: AU)
  Receive Date: 20180620
  Receipt Date: 20180620
  Transmission Date: 20180711
  Serious: Yes (Hospitalization, Other)
  Sender: FDA-Public Use
  Company Number: AU-ORION CORPORATION ORION PHARMA-TREX2018-0812

PATIENT
  Age: 70 Year
  Sex: Male

DRUGS (2)
  1. SOLONE [Concomitant]
     Active Substance: PREDNISOLONE
     Route: 065
     Dates: start: 2015
  2. METHOTREXATE (TRADE NAME UNKNOWN) [Suspect]
     Active Substance: METHOTREXATE
     Indication: RHEUMATOID ARTHRITIS
     Route: 065
     Dates: start: 201509, end: 201703

REACTIONS (11)
  - Pulmonary fibrosis [Unknown]
  - Cough [Unknown]
  - Hyperhidrosis [Not Recovered/Not Resolved]
  - Enteritis infectious [Unknown]
  - Photopsia [Unknown]
  - Intestinal obstruction [Unknown]
  - Influenza [Unknown]
  - Abdominal distension [Not Recovered/Not Resolved]
  - Quality of life decreased [Unknown]
  - Acne [Not Recovered/Not Resolved]
  - Immunosuppression [Unknown]

NARRATIVE: CASE EVENT DATE: 201509
